FAERS Safety Report 9146207 (Version 1)
Quarter: 2013Q1

REPORT INFORMATION
  Report Type: Spontaneous
  Country: ES (occurrence: ES)
  Receive Date: 20130307
  Receipt Date: 20130307
  Transmission Date: 20140127
  Serious: Yes (Other)
  Sender: FDA-Public Use
  Company Number: PHHY2013ES021448

PATIENT
  Age: 49 Year
  Sex: Male

DRUGS (1)
  1. IMATINIB [Suspect]
     Indication: CHRONIC MYELOID LEUKAEMIA
     Dosage: 400 MG, BID
     Route: 048

REACTIONS (6)
  - Pseudoporphyria [Recovered/Resolved]
  - Blood blister [Unknown]
  - Skin erosion [Unknown]
  - Scab [Unknown]
  - Scar [Unknown]
  - Skin lesion [Unknown]
